FAERS Safety Report 5352394-0 (Version None)
Quarter: 2007Q2

REPORT INFORMATION
  Report Type: 
  Country: None (occurrence: None)
  Receive Date: 20070607
  Receipt Date: 20070607
  Transmission Date: 20071010
  Serious: No
  Sender: FDA-Public Use
  Company Number: None

PATIENT
  Age: 83 Year
  Sex: Female

DRUGS (1)
  1. VFEND [Suspect]
     Indication: PULMONARY MYCOSIS
     Dosage: 200 MG BID PO
     Route: 048
     Dates: start: 20070509, end: 20070514

REACTIONS (2)
  - VISION BLURRED [None]
  - VISUAL DISTURBANCE [None]
